FAERS Safety Report 16479951 (Version 1)
Quarter: 2019Q2

REPORT INFORMATION
  Report Type: Report from Study
  Country: US (occurrence: US)
  Receive Date: 20190626
  Receipt Date: 20190626
  Transmission Date: 20190711
  Serious: Yes (Death)
  Sender: FDA-Public Use
  Company Number: US-ACTELION-A-NJ2018-175803

PATIENT
  Age: 61 Year
  Sex: Female

DRUGS (34)
  1. UPTRAVI [Suspect]
     Active Substance: SELEXIPAG
     Dosage: 400 MCG, BID
     Route: 048
     Dates: start: 20180709
  2. BUMETANIDE. [Concomitant]
     Active Substance: BUMETANIDE
  3. ATORVASTATIN [Concomitant]
     Active Substance: ATORVASTATIN
  4. PROMETHAZINE [Concomitant]
     Active Substance: PROMETHAZINE\PROMETHAZINE HYDROCHLORIDE
  5. LEVOTHYROXIN [Concomitant]
     Active Substance: LEVOTHYROXINE
  6. BIMATOPROST. [Concomitant]
     Active Substance: BIMATOPROST
  7. ASPIRIN. [Concomitant]
     Active Substance: ASPIRIN
  8. MOMETASONE [Concomitant]
     Active Substance: MOMETASONE
  9. SILDENAFIL. [Concomitant]
     Active Substance: SILDENAFIL
  10. ALENDRONATE [Concomitant]
     Active Substance: ALENDRONATE SODIUM
  11. IBANDRONATE [Concomitant]
     Active Substance: IBANDRONATE SODIUM
  12. LANTUS [Concomitant]
     Active Substance: INSULIN GLARGINE
  13. UPTRAVI [Suspect]
     Active Substance: SELEXIPAG
     Dosage: 1000 MCG, BID
     Route: 048
  14. ONDANSETRON [Concomitant]
     Active Substance: ONDANSETRON
  15. METOCLOPRAM [Concomitant]
     Active Substance: METOCLOPRAMIDE
  16. UPTRAVI [Suspect]
     Active Substance: SELEXIPAG
     Dosage: 800 MCG, BID
     Route: 048
  17. ROBAFEN AC [Concomitant]
     Active Substance: CODEINE PHOSPHATE\GUAIFENESIN
  18. METHYLPRED [Concomitant]
     Active Substance: METHYLPREDNISOLONE
  19. ENOXAPARIN [Concomitant]
     Active Substance: ENOXAPARIN
  20. NOVOLOG [Concomitant]
     Active Substance: INSULIN ASPART
  21. OPSUMIT [Suspect]
     Active Substance: MACITENTAN
     Indication: PULMONARY ARTERIAL HYPERTENSION
     Dosage: 10 MG, QD
     Route: 048
     Dates: start: 20171228
  22. SPIRONOLACTONE. [Concomitant]
     Active Substance: SPIRONOLACTONE
  23. LIOTHYRONINE [Concomitant]
     Active Substance: LIOTHYRONINE
  24. SIMVASTATIN. [Concomitant]
     Active Substance: SIMVASTATIN
  25. CLOTRIMAZOLE. [Concomitant]
     Active Substance: CLOTRIMAZOLE
  26. METOPROLOL. [Concomitant]
     Active Substance: METOPROLOL
  27. UPTRAVI [Suspect]
     Active Substance: SELEXIPAG
     Indication: PULMONARY ARTERIAL HYPERTENSION
     Dosage: 1200 MCG, BID
     Route: 048
     Dates: start: 20180630
  28. UPTRAVI [Suspect]
     Active Substance: SELEXIPAG
     Dosage: UNK
     Route: 048
  29. POTASSIUM CHLORIDE. [Concomitant]
     Active Substance: POTASSIUM CHLORIDE
  30. TRAZODONE [Concomitant]
     Active Substance: TRAZODONE HYDROCHLORIDE
  31. ZALEPLON. [Concomitant]
     Active Substance: ZALEPLON
  32. ADVAIR HFA [Concomitant]
     Active Substance: FLUTICASONE PROPIONATE\SALMETEROL XINAFOATE
  33. AMOXIC+A-CLAV.GI K [Concomitant]
  34. MYCOPHENOLATE [Concomitant]
     Active Substance: MYCOPHENOLIC ACID

REACTIONS (19)
  - Death [Fatal]
  - Nasal congestion [Not Recovered/Not Resolved]
  - Nausea [Not Recovered/Not Resolved]
  - Myalgia [Unknown]
  - Pain in extremity [Unknown]
  - Dyspepsia [Unknown]
  - Epistaxis [Unknown]
  - Pain in jaw [Unknown]
  - Vomiting [Unknown]
  - Rash [Unknown]
  - Erythema [Unknown]
  - Hearing disability [Unknown]
  - Oedema peripheral [Unknown]
  - Headache [Not Recovered/Not Resolved]
  - Arthralgia [Unknown]
  - Pain [Unknown]
  - Fatigue [Not Recovered/Not Resolved]
  - Visual impairment [Unknown]
  - Hypotension [Not Recovered/Not Resolved]

NARRATIVE: CASE EVENT DATE: 20180709
